FAERS Safety Report 6952835-9 (Version None)
Quarter: 2010Q3

REPORT INFORMATION
  Report Type: 
  Country: None (occurrence: None)
  Receive Date: 20100829
  Receipt Date: 20100516
  Transmission Date: 20110219
  Serious: No
  Sender: FDA-Public Use
  Company Number: US-ABBOTT-10P-163-0646004-00

PATIENT
  Sex: Male

DRUGS (2)
  1. NIASPAN [Suspect]
     Indication: BLOOD CHOLESTEROL INCREASED
     Route: 048
     Dates: start: 20090101
  2. NIASPAN [Suspect]
     Route: 048
     Dates: start: 20090101

REACTIONS (5)
  - ERYTHEMA [None]
  - FLUSHING [None]
  - HOT FLUSH [None]
  - PARAESTHESIA [None]
  - RASH MACULAR [None]
